FAERS Safety Report 6782053-9 (Version None)
Quarter: 2010Q2

REPORT INFORMATION
  Report Type: 
  Country: None (occurrence: None)
  Receive Date: 20100621
  Receipt Date: 20100609
  Transmission Date: 20101027
  Serious: Yes (Hospitalization)
  Sender: FDA-Public Use
  Company Number: B0647072A

PATIENT
  Age: 34 Year
  Sex: Female

DRUGS (12)
  1. ZOPHREN [Suspect]
     Route: 065
     Dates: start: 20100128, end: 20100211
  2. LEXOMIL [Suspect]
     Indication: DRUG USE FOR UNKNOWN INDICATION
     Route: 048
     Dates: end: 20100211
  3. NEXIUM [Suspect]
     Indication: DRUG USE FOR UNKNOWN INDICATION
     Route: 065
     Dates: end: 20100211
  4. EMEND [Suspect]
     Indication: DRUG USE FOR UNKNOWN INDICATION
     Route: 065
  5. METOPIMAZINE [Suspect]
     Indication: DRUG USE FOR UNKNOWN INDICATION
     Route: 065
     Dates: end: 20100211
  6. SPASFON [Suspect]
     Indication: DRUG USE FOR UNKNOWN INDICATION
     Route: 065
     Dates: end: 20100211
  7. DEBRIDAT [Suspect]
     Indication: DRUG USE FOR UNKNOWN INDICATION
     Route: 065
     Dates: end: 20100211
  8. SOLUPRED [Suspect]
     Indication: DRUG USE FOR UNKNOWN INDICATION
     Route: 065
     Dates: end: 20100211
  9. MOTILIUM [Concomitant]
     Route: 065
  10. PRIMPERAN TAB [Concomitant]
     Route: 065
  11. GAVISCON [Concomitant]
     Route: 065
  12. CISPLATIN [Concomitant]
     Route: 065

REACTIONS (1)
  - HEPATOCELLULAR INJURY [None]
